FAERS Safety Report 20095847 (Version 2)
Quarter: 2021Q4

REPORT INFORMATION
  Report Type: Spontaneous
  Country: NL (occurrence: NL)
  Receive Date: 20211122
  Receipt Date: 20211208
  Transmission Date: 20220303
  Serious: Yes (Other)
  Sender: FDA-Public Use
  Company Number: NL-NOVARTISPH-NVSC2021NL263282

PATIENT
  Age: 56 Year
  Sex: Female
  Weight: 173 kg

DRUGS (12)
  1. SIPONIMOD [Suspect]
     Active Substance: SIPONIMOD
     Indication: Secondary progressive multiple sclerosis
     Dosage: 0.25 MG, QD (DAY 1 AND 2)
     Route: 048
  2. SIPONIMOD [Suspect]
     Active Substance: SIPONIMOD
     Dosage: 0.25 MG (DAY 3: 0.5MG QD (2 TABLETS OF 0.25MG)
     Route: 048
  3. SIPONIMOD [Suspect]
     Active Substance: SIPONIMOD
     Dosage: 0.25 MG ((DAY 4: 0.75 MG QD(3 TABLETS OF 0.25 MG)
     Route: 048
  4. SIPONIMOD [Suspect]
     Active Substance: SIPONIMOD
     Dosage: 0.25 MG (DAY 5: 1.25 MG (5 TABLETS OF 0.25 MG)
     Route: 048
  5. SIPONIMOD [Suspect]
     Active Substance: SIPONIMOD
     Dosage: 2 MG, QD (FROM DAY 6)
     Route: 048
     Dates: start: 20211108
  6. SODIUM LAURYL SULPHOACETATE [Concomitant]
     Indication: Product used for unknown indication
     Dosage: UNK, BID 5 ML (9/625MG/ML)
     Route: 054
  7. NITROFURANTOIN [Concomitant]
     Active Substance: NITROFURANTOIN
     Indication: Product used for unknown indication
     Dosage: 50 MG  (BEFORE THE NIGHT 100 MG)
     Route: 048
  8. OMEGA 3 [Concomitant]
     Active Substance: CAPSAICIN
     Indication: Product used for unknown indication
     Dosage: 1 DOSAGE FORM, QD
     Route: 048
  9. VITAMIN C [Concomitant]
     Active Substance: ASCORBIC ACID
     Indication: Product used for unknown indication
     Dosage: 1 DOSAGE FORM, QD
     Route: 048
  10. BACLOFEN [Concomitant]
     Active Substance: BACLOFEN
     Indication: Product used for unknown indication
     Dosage: 10 MG, TID (20 MG)
     Route: 048
  11. ACETAMINOPHEN [Concomitant]
     Active Substance: ACETAMINOPHEN
     Indication: Product used for unknown indication
     Dosage: 500 MG 9BEFORE THE NIGHT 1.000 MG)
     Route: 048
  12. FOSFOMYCIN [Concomitant]
     Active Substance: FOSFOMYCIN
     Indication: Product used for unknown indication
     Dosage: 3 G, QW3
     Route: 048

REACTIONS (1)
  - Hallucination [Recovering/Resolving]

NARRATIVE: CASE EVENT DATE: 20211108
